FAERS Safety Report 7514907-X (Version None)
Quarter: 2011Q2

REPORT INFORMATION
  Report Type: 
  Country: None (occurrence: None)
  Receive Date: 20110601
  Receipt Date: 20110520
  Transmission Date: 20111010
  Serious: Yes (Other)
  Sender: FDA-Public Use
  Company Number: AR-AMGEN-ARGSP2011027034

PATIENT
  Sex: Female

DRUGS (3)
  1. FILARTROS [Concomitant]
     Dosage: UNK
  2. NAPROXEN [Concomitant]
     Dosage: UNK
  3. ENBREL [Suspect]
     Indication: PRODUCT USED FOR UNKNOWN INDICATION
     Dosage: UNK

REACTIONS (1)
  - HYPOACUSIS [None]
